FAERS Safety Report 8612247-9 (Version None)
Quarter: 2012Q3

REPORT INFORMATION
  Report Type: 
  Country: None (occurrence: None)
  Receive Date: 20120822
  Receipt Date: 20120814
  Transmission Date: 20120928
  Serious: Yes (Other)
  Sender: FDA-Public Use
  Company Number: RU-BAYER-2012-003058

PATIENT
  Age: 33 Year
  Sex: Female

DRUGS (6)
  1. DROSPIRENONE AND ETHINYL ESTRADIOL [Suspect]
     Indication: MENSTRUATION IRREGULAR
     Dosage: UNK
     Dates: start: 20110101
  2. TRI-REGOL [Suspect]
  3. YAZ [Suspect]
  4. DIANE-35 [Suspect]
     Indication: PRODUCT USED FOR UNKNOWN INDICATION
     Dosage: UNK
  5. JEANINE [Suspect]
  6. DROSPIRENONE AND ETHINYL ESTRADIOL [Suspect]
     Dosage: UNK

REACTIONS (9)
  - ABNORMAL WITHDRAWAL BLEEDING [None]
  - DYSGEUSIA [None]
  - ABDOMINAL PAIN UPPER [None]
  - GASTROINTESTINAL PAIN [None]
  - DUODENAL ULCER [None]
  - LIPOMATOSIS [None]
  - NAUSEA [None]
  - DYSPEPSIA [None]
  - MALAISE [None]
